FAERS Safety Report 10597416 (Version 1)
Quarter: 2014Q4

REPORT INFORMATION
  Report Type: Spontaneous
  Country: US (occurrence: None)
  Receive Date: 20141120
  Receipt Date: 20141120
  Transmission Date: 20150529
  Serious: Yes (Life-Threatening, Hospitalization)
  Sender: FDA-Public Use
  Company Number: None

PATIENT
  Age: 76 Year
  Sex: Male
  Weight: 51.7 kg

DRUGS (1)
  1. HEPARIN [Suspect]
     Active Substance: HEPARIN SODIUM
     Indication: THROMBOSIS PROPHYLAXIS
     Route: 042
     Dates: start: 20100612, end: 20100613

REACTIONS (5)
  - Chills [None]
  - Thrombocytopenia [None]
  - Haemorrhage [None]
  - Mental status changes [None]
  - Pyrexia [None]

NARRATIVE: CASE EVENT DATE: 20100612
